FAERS Safety Report 7496795-3 (Version None)
Quarter: 2011Q2

REPORT INFORMATION
  Report Type: 
  Country: None (occurrence: None)
  Receive Date: 20110523
  Receipt Date: 20110509
  Transmission Date: 20111010
  Serious: Yes (Other)
  Sender: FDA-Public Use
  Company Number: CA-JNJFOC-20100809055

PATIENT
  Sex: Male
  Weight: 75.8 kg

DRUGS (4)
  1. REMICADE [Suspect]
     Indication: ANKYLOSING SPONDYLITIS
     Dosage: RECEIVED 23 INFUSIONS
     Route: 042
     Dates: start: 20100824
  2. REMICADE [Suspect]
     Route: 042
  3. REMICADE [Suspect]
     Indication: PSORIATIC ARTHROPATHY
     Route: 042
  4. REMICADE [Suspect]
     Dosage: RECEIVED 23 INFUSIONS
     Route: 042
     Dates: start: 20100824

REACTIONS (3)
  - IGA NEPHROPATHY [None]
  - HYPERTENSION [None]
  - LIPIDS INCREASED [None]
